FAERS Safety Report 7095653-6 (Version None)
Quarter: 2010Q4

REPORT INFORMATION
  Report Type: 
  Country: None (occurrence: None)
  Receive Date: 20101111
  Receipt Date: 20101028
  Transmission Date: 20110411
  Serious: Yes (Other)
  Sender: FDA-Public Use
  Company Number: PHHY2010NL72540

PATIENT
  Sex: Female

DRUGS (1)
  1. RITALIN [Suspect]
     Dosage: 10 MG, UNK

REACTIONS (4)
  - ANGIOEDEMA [None]
  - EYELID OEDEMA [None]
  - LIP SWELLING [None]
  - SWELLING FACE [None]
